FAERS Safety Report 24681790 (Version 1)
Quarter: 2024Q4

REPORT INFORMATION
  Report Type: Spontaneous
  Country: GB (occurrence: GB)
  Receive Date: 20241130
  Receipt Date: 20241130
  Transmission Date: 20250114
  Serious: Yes (Disabling, Other)
  Sender: AUROBINDO
  Company Number: GB-MHRA-MED-202411181842064230-BNZLH

PATIENT
  Age: 30 Year
  Sex: Female
  Weight: 62 kg

DRUGS (2)
  1. CITALOPRAM HYDROBROMIDE [Suspect]
     Active Substance: CITALOPRAM HYDROBROMIDE
     Indication: Panic attack
     Dosage: 20 MILLIGRAM, ONCE A DAY
     Route: 065
     Dates: start: 202407, end: 202410
  2. TOFACITINIB [Concomitant]
     Active Substance: TOFACITINIB
     Indication: Alopecia
     Dosage: UNK
     Route: 065
     Dates: start: 20231202

REACTIONS (2)
  - Acne [Not Recovered/Not Resolved]
  - Diarrhoea [Recovering/Resolving]

NARRATIVE: CASE EVENT DATE: 20240701
